FAERS Safety Report 8906987 (Version 1)
Quarter: 2012Q4

REPORT INFORMATION
  Report Type: 
  Country: FR (occurrence: FR)
  Receive Date: 20121114
  Receipt Date: 20121114
  Transmission Date: 20130627
  Serious: Yes (Hospitalization)
  Sender: FDA-Public Use
  Company Number: FR-ASTRAZENECA-2012SE84839

PATIENT
  Age: 21241 Day
  Sex: Female

DRUGS (3)
  1. INEXIUM [Suspect]
     Indication: RHEUMATOID ARTHRITIS
     Dosage: daily  frequency
     Route: 048
  2. METHOTREXATE [Suspect]
     Indication: RHEUMATOID ARTHRITIS
     Route: 048
     Dates: end: 20121005
  3. VOLTARENE [Suspect]
     Indication: RHEUMATOID ARTHRITIS
     Route: 048

REACTIONS (2)
  - Hepatocellular injury [Recovered/Resolved]
  - Pyelonephritis acute [Unknown]
